FAERS Safety Report 5099745-2 (Version None)
Quarter: 2006Q3

REPORT INFORMATION
  Report Type: 
  Country: None (occurrence: None)
  Receive Date: 20060908
  Receipt Date: 20060831
  Transmission Date: 20061208
  Serious: Yes (Hospitalization)
  Sender: FDA-Public Use
  Company Number: US-ROCHE-461628

PATIENT
  Age: 42 Year
  Sex: Female
  Weight: 131.5 kg

DRUGS (5)
  1. ROCEPHIN [Suspect]
     Dosage: ROUTE REPORTED AS INJ. INDICATION REPORTED: SINUS INFECTION AND UTI (URINARY TRACT INFECTION).
     Route: 050
     Dates: start: 20060412, end: 20060413
  2. ROCEPHIN [Suspect]
     Dosage: ROUTE : INTRAVENOUS.
     Route: 050
     Dates: start: 20060415, end: 20060417
  3. GLUCOPHAGE [Concomitant]
     Route: 048
  4. GLYBURIDE [Concomitant]
     Route: 048
  5. WELLBUTRIN [Concomitant]
     Indication: LIBIDO DECREASED
     Route: 048

REACTIONS (7)
  - CONFUSIONAL STATE [None]
  - DRUG DOSE OMISSION [None]
  - HEPATITIS [None]
  - LIVER DISORDER [None]
  - LOSS OF CONSCIOUSNESS [None]
  - RENAL FAILURE ACUTE [None]
  - TREMOR [None]
